FAERS Safety Report 19685196 (Version 2)
Quarter: 2021Q3

REPORT INFORMATION
  Report Type: Spontaneous
  Country: BR (occurrence: BR)
  Receive Date: 20210811
  Receipt Date: 20210812
  Transmission Date: 20211014
  Serious: Yes (Other)
  Sender: FDA-Public Use
  Company Number: BR-PFIZER INC-2021498492

PATIENT
  Age: 60 Year
  Sex: Female

DRUGS (2)
  1. GENOTROPIN [Suspect]
     Active Substance: SOMATROPIN
     Indication: WEIGHT DECREASED
  2. GENOTROPIN [Suspect]
     Active Substance: SOMATROPIN
     Indication: HEPATIC STEATOSIS
     Dosage: UNK
     Dates: start: 20210427

REACTIONS (6)
  - Off label use [Unknown]
  - Spinal disorder [Unknown]
  - Device mechanical issue [Unknown]
  - Poor quality device used [Unknown]
  - Drug dose omission by device [Unknown]
  - Drug effective for unapproved indication [Unknown]

NARRATIVE: CASE EVENT DATE: 20210427
